FAERS Safety Report 9769100 (Version 2)
Quarter: 2013Q4

REPORT INFORMATION
  Report Type: Spontaneous
  Country: FR (occurrence: FR)
  Receive Date: 20131218
  Receipt Date: 20131224
  Transmission Date: 20140711
  Serious: Yes (Other)
  Sender: FDA-Public Use
  Company Number: FR-JNJFOC-20131206556

PATIENT
  Age: 6 Decade
  Sex: Male

DRUGS (1)
  1. RISPERDAL CONSTA [Suspect]
     Indication: SCHIZOPHRENIA
     Dosage: SINCE A LONG TIME
     Route: 030

REACTIONS (2)
  - Retinal vein occlusion [Unknown]
  - Condition aggravated [Unknown]
